FAERS Safety Report 10061762 (Version 1)
Quarter: 2014Q2

REPORT INFORMATION
  Report Type: Spontaneous
  Country: US (occurrence: None)
  Receive Date: 20140404
  Receipt Date: 20140404
  Transmission Date: 20141212
  Serious: Yes (Disabling)
  Sender: FDA-Public Use
  Company Number: None

PATIENT
  Age: 46 Year
  Sex: Female
  Weight: 57.15 kg

DRUGS (1)
  1. CIPROFLOXACIN [Suspect]
     Indication: SINUSITIS
     Dosage: 1 PILLS TWICE DAILY TAKEN BY MOUTH
     Route: 048
     Dates: start: 20070226, end: 20070228

REACTIONS (8)
  - Nervous system disorder [None]
  - Tendon injury [None]
  - Ligament injury [None]
  - Arthralgia [None]
  - Joint stiffness [None]
  - Gastrointestinal disorder [None]
  - Balance disorder [None]
  - Toxicity to various agents [None]
